FAERS Safety Report 8697547 (Version 11)
Quarter: 2015Q1

REPORT INFORMATION
  Report Type: Report from Study
  Country: FR (occurrence: FR)
  Receive Date: 20120801
  Receipt Date: 20150227
  Transmission Date: 20150721
  Serious: Yes (Other)
  Sender: FDA-Public Use
  Company Number: FR-TEVA-351340USA

PATIENT
  Age: 63 Year
  Sex: Female
  Weight: 62 kg

DRUGS (11)
  1. MABTHERA [Suspect]
     Active Substance: RITUXIMAB
     Route: 041
  2. FORLAX [Concomitant]
     Active Substance: POLYETHYLENE GLYCOL 4000
     Indication: ABDOMINAL PAIN
     Dates: start: 20120125, end: 20120202
  3. LANSOYL [Concomitant]
     Active Substance: MINERAL OIL
     Indication: ABDOMINAL PAIN
     Dates: start: 20120125, end: 20120202
  4. MABTHERA [Suspect]
     Active Substance: RITUXIMAB
     Route: 041
  5. LEVACT [Suspect]
     Active Substance: BENDAMUSTINE HYDROCHLORIDE
     Indication: B-CELL LYMPHOMA
     Route: 042
     Dates: start: 20111117, end: 20111216
  6. LEVACT [Suspect]
     Active Substance: BENDAMUSTINE HYDROCHLORIDE
     Route: 042
  7. MABTHERA [Suspect]
     Active Substance: RITUXIMAB
     Indication: B-CELL LYMPHOMA
     Dates: start: 20111117, end: 20111208
  8. DEBRIDAT [Concomitant]
     Active Substance: TRIMEBUTINE MALEATE
     Indication: ABDOMINAL PAIN
     Dosage: 300 MILLIGRAM DAILY;
     Route: 048
     Dates: start: 20120125, end: 20120202
  9. LEVACT [Suspect]
     Active Substance: BENDAMUSTINE HYDROCHLORIDE
     Route: 042
  10. MABTHERA [Suspect]
     Active Substance: RITUXIMAB
     Route: 041
  11. MABTHERA [Suspect]
     Active Substance: RITUXIMAB
     Route: 041

REACTIONS (1)
  - Neoplasm [Recovered/Resolved with Sequelae]

NARRATIVE: CASE EVENT DATE: 20120208
